FAERS Safety Report 7948358-0 (Version None)
Quarter: 2011Q4

REPORT INFORMATION
  Report Type: 
  Country: None (occurrence: None)
  Receive Date: 20111123
  Receipt Date: 20111111
  Transmission Date: 20120403
  Serious: Yes (Hospitalization)
  Sender: FDA-Public Use
  Company Number: 2011AL0336

PATIENT
  Age: 10 Month
  Sex: Female

DRUGS (1)
  1. ORFADIN [Suspect]
     Indication: TYROSINAEMIA
     Dosage: 1 MG/KG (1 MG/KG, 1 IN 1 D), PER ORAL
     Route: 048
     Dates: start: 20111011

REACTIONS (2)
  - ASCITES [None]
  - HYPERBILIRUBINAEMIA [None]
